FAERS Safety Report 9297532 (Version 1)
Quarter: 2013Q2

REPORT INFORMATION
  Report Type: Spontaneous
  Country: IN (occurrence: IN)
  Receive Date: 20130520
  Receipt Date: 20130520
  Transmission Date: 20140414
  Serious: Yes (Other)
  Sender: FDA-Public Use
  Company Number: IN-ACCORD-017651

PATIENT
  Age: 40 Year
  Sex: Male

DRUGS (1)
  1. GEMCITABINE [Suspect]
     Indication: BLADDER CANCER

REACTIONS (2)
  - Acute generalised exanthematous pustulosis [Recovered/Resolved]
  - Off label use [Unknown]
